FAERS Safety Report 17916110 (Version 1)
Quarter: 2020Q2

REPORT INFORMATION
  Report Type: Spontaneous
  Country: US (occurrence: US)
  Receive Date: 20200618
  Receipt Date: 20200618
  Transmission Date: 20200714
  Serious: Yes (Other)
  Sender: FDA-Public Use
  Company Number: None

PATIENT
  Sex: Female

DRUGS (1)
  1. TEMOZOLOMIDE 100MG SUN PHARMACEUTICAL [Suspect]
     Active Substance: TEMOZOLOMIDE
     Indication: BRAIN NEOPLASM MALIGNANT
     Dosage: SEE EVENT   OTHER FREQUENCY:DAYS 1-5/28 DAYS;?
     Route: 048
     Dates: start: 20200507

REACTIONS (3)
  - Depression [None]
  - Hot flush [None]
  - Platelet count decreased [None]
